FAERS Safety Report 7932012-5 (Version None)
Quarter: 2011Q4

REPORT INFORMATION
  Report Type: 
  Country: None (occurrence: None)
  Receive Date: 20111121
  Receipt Date: 20111115
  Transmission Date: 20120403
  Serious: Yes (Life-Threatening)
  Sender: FDA-Public Use
  Company Number: GB-ASTRAZENECA-2011SE69070

PATIENT
  Age: 42 Year
  Sex: Female
  Weight: 80 kg

DRUGS (3)
  1. QUETIAPINE [Suspect]
     Indication: DEPRESSION
     Route: 048
  2. MIRTAZAPINE [Concomitant]
  3. CANDESARTAN CILEXETIL [Concomitant]
     Route: 048

REACTIONS (2)
  - LEFT VENTRICULAR DYSFUNCTION [None]
  - CARDIAC FAILURE [None]
